FAERS Safety Report 4404820-9 (Version None)
Quarter: 2004Q2

REPORT INFORMATION
  Report Type: 
  Country: None (occurrence: None)
  Receive Date: 20040621
  Receipt Date: 20040315
  Transmission Date: 20050107
  Serious: No
  Sender: FDA-Public Use
  Company Number: A-US2004-05411

PATIENT
  Age: 72 Year
  Sex: Female

DRUGS (8)
  1. TRACLEER [Suspect]
     Dosage: 62.5 MG, ORAL
     Route: 048
     Dates: start: 20040305, end: 20040306
  2. LORTAB [Concomitant]
  3. ATIVAN [Concomitant]
  4. ANTIVERT (MECLOZINE HYDROCLORIDE) [Concomitant]
  5. ZOLOFT [Concomitant]
  6. VIOXX [Concomitant]
  7. CALCIUM (CALCIUM) [Concomitant]
  8. MAGNESIUM [Concomitant]

REACTIONS (3)
  - DIZZINESS [None]
  - HYPOAESTHESIA [None]
  - HYPOVENTILATION [None]
